FAERS Safety Report 13954943 (Version 1)
Quarter: 2017Q3

REPORT INFORMATION
  Report Type: Spontaneous
  Country: US (occurrence: US)
  Receive Date: 20170911
  Receipt Date: 20170911
  Transmission Date: 20171128
  Serious: Yes (Other)
  Sender: FDA-Public Use
  Company Number: None

PATIENT
  Age: 27 Year
  Sex: Female
  Weight: 125.1 kg

DRUGS (2)
  1. BOTOX [Suspect]
     Active Substance: ONABOTULINUMTOXINA
     Indication: MIGRAINE
     Dosage: OTHER FREQUENCY:EVERY 90 DAYS;?
     Route: 058
     Dates: start: 20170207, end: 20170728
  2. BOTOX [Suspect]
     Active Substance: ONABOTULINUMTOXINA
     Indication: PROPHYLAXIS
     Dosage: OTHER FREQUENCY:EVERY 90 DAYS;?
     Route: 058
     Dates: start: 20170207, end: 20170728

REACTIONS (1)
  - Alopecia [None]

NARRATIVE: CASE EVENT DATE: 20170801
